FAERS Safety Report 20458730 (Version 2)
Quarter: 2022Q1

REPORT INFORMATION
  Report Type: Spontaneous
  Country: US (occurrence: US)
  Receive Date: 20220211
  Receipt Date: 20220224
  Transmission Date: 20220423
  Serious: Yes (Other)
  Sender: FDA-Public Use
  Company Number: US-TEVA-2022-US-2005283

PATIENT
  Age: 66 Year
  Sex: Male

DRUGS (17)
  1. CLONIDINE [Suspect]
     Active Substance: CLONIDINE
     Indication: Intentional product misuse
     Dosage: 19 TABLETS, AT BEDTIME (ONGOING TAPER)
     Route: 048
  2. CLONIDINE [Suspect]
     Active Substance: CLONIDINE
     Dosage: 19 TABLETS, AT BEDTIME - AFTER WITHDRAWAL GIVEN AGAIN
     Route: 048
  3. DIVALPROEX SODIUM [Suspect]
     Active Substance: DIVALPROEX SODIUM
     Indication: Bipolar I disorder
     Dosage: AT BEDTIME- EXTENDED RELEASE
     Route: 065
  4. CLONIDINE [Suspect]
     Active Substance: CLONIDINE
     Indication: Intentional product misuse
     Route: 065
  5. CLONIDINE [Suspect]
     Active Substance: CLONIDINE
     Dosage: GIVEN AGAIN AFTER WITHDRAWAL
     Route: 065
  6. METHADONE [Concomitant]
     Active Substance: METHADONE HYDROCHLORIDE
     Indication: Back pain
     Dosage: 170 MILLIGRAM DAILY;
     Route: 065
  7. SERTRALINE [Concomitant]
     Active Substance: SERTRALINE HYDROCHLORIDE
     Indication: Generalised anxiety disorder
     Dosage: 50 MILLIGRAM DAILY;
     Route: 065
  8. PROPRANOLOL [Concomitant]
     Active Substance: PROPRANOLOL HYDROCHLORIDE
     Indication: Hypertension
     Dosage: 40 MILLIGRAM DAILY;
     Route: 065
  9. FERROUS GLUCONATE [Concomitant]
     Active Substance: FERROUS GLUCONATE
     Indication: Product used for unknown indication
     Dosage: 972 MILLIGRAM DAILY; THREE TIMES PER DAY
     Route: 065
  10. SENNOSIDES [Concomitant]
     Active Substance: SENNOSIDES
     Indication: Product used for unknown indication
     Dosage: 8.6 MILLIGRAM DAILY;
     Route: 065
  11. FINASTERIDE [Concomitant]
     Active Substance: FINASTERIDE
     Indication: Benign prostatic hyperplasia
     Dosage: 10 MILLIGRAM DAILY;
     Route: 065
  12. ERGOCALCIFEROL [Concomitant]
     Active Substance: ERGOCALCIFEROL
     Indication: Product used for unknown indication
     Route: 065
  13. SODIUM BICARBONATE [Concomitant]
     Active Substance: SODIUM BICARBONATE
     Indication: Product used for unknown indication
     Dosage: 1300 MILLIGRAM DAILY;
     Route: 065
  14. LOSARTAN [Concomitant]
     Active Substance: LOSARTAN
     Indication: Hypertension
     Route: 065
  15. MORPHINE [Concomitant]
     Active Substance: MORPHINE
     Indication: Sciatica
     Route: 042
  16. HYDROMORPHONE [Concomitant]
     Active Substance: HYDROMORPHONE
     Indication: Sciatica
     Dosage: ONCE
     Route: 042
  17. DEXAMETHASONE [Concomitant]
     Active Substance: DEXAMETHASONE
     Indication: Sciatica
     Dosage: ONCE
     Route: 042

REACTIONS (7)
  - Withdrawal hypertension [Unknown]
  - Blood creatinine increased [Unknown]
  - Intentional product misuse [Unknown]
  - Hypotension [Unknown]
  - Hypokalaemia [Unknown]
  - Drug withdrawal syndrome [Unknown]
  - Treatment noncompliance [Unknown]
